FAERS Safety Report 10792117 (Version 1)
Quarter: 2015Q1

REPORT INFORMATION
  Report Type: Spontaneous
  Country: US (occurrence: US)
  Receive Date: 20150213
  Receipt Date: 20150213
  Transmission Date: 20150721
  Serious: Yes (Other)
  Sender: FDA-Public Use
  Company Number: US-SA-2015SA016534

PATIENT
  Age: 64 Year
  Sex: Female

DRUGS (6)
  1. HUMALOG [Concomitant]
     Active Substance: INSULIN LISPRO
  2. METFORMIN [Concomitant]
     Active Substance: METFORMIN HYDROCHLORIDE
  3. LANTUS SOLOSTAR [Suspect]
     Active Substance: INSULIN GLARGINE
     Indication: TYPE 2 DIABETES MELLITUS
     Dosage: DOSE:30 UNIT(S)
     Route: 065
  4. APIDRA [Suspect]
     Active Substance: INSULIN GLULISINE
     Route: 065
  5. JANUVIA [Concomitant]
     Active Substance: SITAGLIPTIN PHOSPHATE
  6. SOLOSTAR [Concomitant]
     Active Substance: DEVICE

REACTIONS (3)
  - Cataract [Recovering/Resolving]
  - Visual acuity reduced [Recovering/Resolving]
  - Blood glucose decreased [Unknown]
